FAERS Safety Report 6033929-1 (Version None)
Quarter: 2009Q1

REPORT INFORMATION
  Report Type: 
  Country: None (occurrence: None)
  Receive Date: 20090112
  Receipt Date: 20090102
  Transmission Date: 20090719
  Serious: Yes (Other)
  Sender: FDA-Public Use
  Company Number: DE-JNJFOC-20081201614

PATIENT
  Age: 43 Year
  Sex: Female
  Weight: 101 kg

DRUGS (8)
  1. REMICADE [Suspect]
     Indication: PSORIASIS
     Route: 042
  2. METHOTREXATE [Concomitant]
  3. RAMIPRIL [Concomitant]
     Indication: OEDEMA
  4. RAMIPRIL [Concomitant]
     Indication: HYPERTENSION
  5. FUROSEMIDE [Concomitant]
     Indication: OEDEMA
  6. FUROSEMIDE [Concomitant]
     Indication: HYPERTENSION
  7. MORPHINE [Concomitant]
     Indication: PAIN
  8. NEXIUM [Concomitant]
     Indication: GASTROINTESTINAL DISORDER THERAPY

REACTIONS (1)
  - DIABETES INSIPIDUS [None]
